FAERS Safety Report 6959399-4 (Version None)
Quarter: 2010Q3

REPORT INFORMATION
  Report Type: 
  Country: None (occurrence: None)
  Receive Date: 20100831
  Receipt Date: 20100831
  Transmission Date: 20110219
  Serious: No
  Sender: FDA-Public Use
  Company Number: None

PATIENT
  Age: 74 Year
  Sex: Male
  Weight: 53.5244 kg

DRUGS (1)
  1. DIGOXIN [Suspect]
     Indication: ATRIAL FIBRILLATION
     Dosage: 0.375 MG AT BEDTIME PO
     Route: 048
     Dates: start: 20040124, end: 20100302

REACTIONS (6)
  - ABDOMINAL PAIN UPPER [None]
  - ALOPECIA [None]
  - ARRHYTHMIA [None]
  - EPISTAXIS [None]
  - HAEMATURIA [None]
  - OEDEMA PERIPHERAL [None]
